FAERS Safety Report 18271604 (Version 1)
Quarter: 2020Q3

REPORT INFORMATION
  Report Type: Report from Study
  Country: US (occurrence: US)
  Receive Date: 20200916
  Receipt Date: 20200916
  Transmission Date: 20201103
  Serious: Yes (Death, Hospitalization, Other)
  Sender: FDA-Public Use
  Company Number: US-ROCHE-2675356

PATIENT
  Sex: Female
  Weight: 69.92 kg

DRUGS (26)
  1. MAXIPIME [Concomitant]
     Active Substance: CEFEPIME HYDROCHLORIDE
     Route: 042
  2. MELATONIN [Concomitant]
     Active Substance: MELATONIN
  3. DRONABINOL. [Concomitant]
     Active Substance: DRONABINOL
     Route: 048
  4. FILGRASTIM [Concomitant]
     Active Substance: FILGRASTIM
  5. MAGNESIUM HYDROXIDE. [Concomitant]
     Active Substance: MAGNESIUM HYDROXIDE
  6. TYLENOL [Concomitant]
     Active Substance: ACETAMINOPHEN
  7. ONDANSETRON [Concomitant]
     Active Substance: ONDANSETRON
  8. IPILIMUMAB [Suspect]
     Active Substance: IPILIMUMAB
     Indication: MALIGNANT MELANOMA STAGE IV
     Dosage: DATE OF MOST RECENT DOSE: 06/AUG/2020
     Route: 042
     Dates: start: 20200625
  9. NIVOLUMAB [Suspect]
     Active Substance: NIVOLUMAB
     Indication: MALIGNANT MELANOMA STAGE IV
     Dosage: DATE OF MOST RECENT DOSE: 06/AUG/2020
     Route: 042
     Dates: start: 20200625
  10. PACLITAXEL. [Concomitant]
     Active Substance: PACLITAXEL
  11. PANTOPRAZOLE [Concomitant]
     Active Substance: PANTOPRAZOLE
     Route: 048
  12. IPRATROPIUM/ALBUTEROL [Concomitant]
     Active Substance: ALBUTEROL\IPRATROPIUM
  13. FENTANYL. [Concomitant]
     Active Substance: FENTANYL
     Dosage: 1 PATCH
     Route: 062
  14. SENNA [Concomitant]
     Active Substance: SENNA LEAF\SENNOSIDES\SENNOSIDES A AND B
  15. TOCILIZUMAB. [Suspect]
     Active Substance: TOCILIZUMAB
     Indication: MALIGNANT MELANOMA STAGE IV
     Dosage: DATE OF MOST RECENT DOSE: 06/AUG/2020
     Route: 042
     Dates: start: 20200625
  16. FAMOTIDINE. [Concomitant]
     Active Substance: FAMOTIDINE
  17. SODIUM CHLORIDE 0.9% [Concomitant]
     Active Substance: SODIUM CHLORIDE
  18. CARBOPLATIN. [Suspect]
     Active Substance: CARBOPLATIN
     Indication: MALIGNANT MELANOMA STAGE IV
     Route: 065
     Dates: start: 20200827
  19. BEVACIZUMAB. [Suspect]
     Active Substance: BEVACIZUMAB
     Indication: MALIGNANT MELANOMA STAGE IV
     Route: 065
     Dates: start: 20200827
  20. VANCOMYCIN [Concomitant]
     Active Substance: VANCOMYCIN
  21. OXYCODONE [Concomitant]
     Active Substance: OXYCODONE
  22. METOPROLOL SUCCINATE. [Concomitant]
     Active Substance: METOPROLOL SUCCINATE
     Route: 048
  23. DOCUSATE SODIUM. [Concomitant]
     Active Substance: DOCUSATE SODIUM
     Route: 048
  24. POLYETHYLENE GLYCOL [Concomitant]
     Active Substance: POLYETHYLENE GLYCOLS
     Route: 048
  25. LIDOCAINE. [Concomitant]
     Active Substance: LIDOCAINE
     Dosage: 1 PATCH
  26. TRAMADOL. [Concomitant]
     Active Substance: TRAMADOL

REACTIONS (6)
  - Atrial fibrillation [Unknown]
  - Acute kidney injury [Unknown]
  - Septic shock [Fatal]
  - Neutropenia [Unknown]
  - Enterococcal bacteraemia [Unknown]
  - Pancytopenia [Unknown]
